FAERS Safety Report 7346501-8 (Version None)
Quarter: 2011Q1

REPORT INFORMATION
  Report Type: 
  Country: None (occurrence: None)
  Receive Date: 20110311
  Receipt Date: 20110217
  Transmission Date: 20110831
  Serious: Yes (Disabling)
  Sender: FDA-Public Use
  Company Number: SE-SOLVAY-00311001793

PATIENT
  Sex: Male

DRUGS (2)
  1. NEBIDO [Suspect]
     Indication: BLOOD TESTOSTERONE DECREASED
     Dosage: DAILY DOSE:  UNKNOWN; AS USED: 1000 MILLIGRAMS
     Route: 030
  2. TESTOSTERONE [Suspect]
     Indication: BLOOD TESTOSTERONE DECREASED
     Dosage: DAILY DOSE:  UNKNOWN
     Route: 062

REACTIONS (5)
  - APPLICATION SITE REACTION [None]
  - MALAISE [None]
  - GAIT DISTURBANCE [None]
  - DIZZINESS [None]
  - HYPERHIDROSIS [None]
